FAERS Safety Report 7251985-X (Version None)
Quarter: 2011Q1

REPORT INFORMATION
  Report Type: 
  Country: None (occurrence: None)
  Receive Date: 20110128
  Receipt Date: 20100203
  Transmission Date: 20110831
  Serious: Yes (Hospitalization)
  Sender: FDA-Public Use
  Company Number: US-ABBOTT-10P-163-0618827-00

PATIENT
  Sex: Male
  Weight: 61.29 kg

DRUGS (4)
  1. LOMOTIL [Concomitant]
     Indication: PRODUCT USED FOR UNKNOWN INDICATION
  2. HUMIRA [Suspect]
     Indication: CROHN'S DISEASE
     Route: 058
     Dates: start: 20090901, end: 20091223
  3. K FOSS [Concomitant]
     Indication: PROPHYLAXIS
  4. K FOSS [Concomitant]
     Indication: NEPHROLITHIASIS

REACTIONS (8)
  - OEDEMA PERIPHERAL [None]
  - MOBILITY DECREASED [None]
  - MUSCULOSKELETAL STIFFNESS [None]
  - STAPHYLOCOCCAL INFECTION [None]
  - JOINT STIFFNESS [None]
  - MYALGIA [None]
  - ASTHENIA [None]
  - ARTHRALGIA [None]
